FAERS Safety Report 13174259 (Version 1)
Quarter: 2017Q1

REPORT INFORMATION
  Report Type: Spontaneous
  Country: SE (occurrence: SE)
  Receive Date: 20170201
  Receipt Date: 20170201
  Transmission Date: 20170428
  Serious: Yes (Disabling)
  Sender: FDA-Public Use
  Company Number: SE-JNJFOC-20170118004

PATIENT
  Sex: Female

DRUGS (5)
  1. LEVAXIN [Concomitant]
     Active Substance: LEVOTHYROXINE SODIUM
     Indication: PRODUCT USED FOR UNKNOWN INDICATION
     Dosage: 75 MG DAILY, PRIOR TO IBUPROFEN
     Route: 065
  2. TROMBYL [Concomitant]
     Active Substance: ASPIRIN
     Indication: PRODUCT USED FOR UNKNOWN INDICATION
     Dosage: 75 MG DAILY, START DATE: PRIOR TO IBUPROFEN
     Route: 065
  3. IPREN [Suspect]
     Active Substance: IBUPROFEN
     Indication: MYOSITIS
     Dosage: 6 FILM-COATED TABLETS 200MG DAILY, START DATE: 3 WEEKS AGO
     Route: 065
     Dates: end: 20170118
  4. IPREN [Suspect]
     Active Substance: IBUPROFEN
     Route: 065
  5. NORMORIX MITE [Concomitant]
     Active Substance: AMILORIDE HYDROCHLORIDE\HYDROCHLOROTHIAZIDE
     Indication: PRODUCT USED FOR UNKNOWN INDICATION
     Dosage: 2,5 MG/25 MG DAILY, START DATE: PRIOR TO IBUPROFEN
     Route: 065

REACTIONS (2)
  - Product label issue [Unknown]
  - Hypoacusis [Unknown]
